FAERS Safety Report 13154108 (Version 1)
Quarter: 2017Q1

REPORT INFORMATION
  Report Type: Spontaneous
  Country: US (occurrence: US)
  Receive Date: 20170125
  Receipt Date: 20170125
  Transmission Date: 20170428
  Serious: No
  Sender: FDA-Public Use
  Company Number: None

PATIENT
  Age: 86 Year
  Sex: Male

DRUGS (1)
  1. ZYTIGA [Suspect]
     Active Substance: ABIRATERONE ACETATE
     Indication: ESSENTIAL HYPERTENSION

REACTIONS (5)
  - Decreased appetite [None]
  - Nausea [None]
  - Wrist fracture [None]
  - Fall [None]
  - Fatigue [None]

NARRATIVE: CASE EVENT DATE: 20160110
